FAERS Safety Report 20869498 (Version 2)
Quarter: 2022Q2

REPORT INFORMATION
  Report Type: Report from Study
  Country: JP (occurrence: JP)
  Receive Date: 20220524
  Receipt Date: 20220530
  Transmission Date: 20220721
  Serious: Yes (Death, Life-Threatening, Hospitalization, Other)
  Sender: FDA-Public Use
  Company Number: JP-NOVARTISPH-NVSJ2022JP090593

PATIENT
  Age: 69 Year
  Sex: Female

DRUGS (3)
  1. TABRECTA [Suspect]
     Active Substance: CAPMATINIB
     Indication: Lung adenocarcinoma stage IV
     Dosage: 800 MG
     Route: 048
     Dates: start: 20210923, end: 20210929
  2. TABRECTA [Suspect]
     Active Substance: CAPMATINIB
     Dosage: 600 MG
     Route: 048
     Dates: start: 20211004, end: 20211005
  3. TABRECTA [Suspect]
     Active Substance: CAPMATINIB
     Dosage: 400 MG
     Route: 048
     Dates: start: 20211011, end: 20211020

REACTIONS (7)
  - Lung adenocarcinoma stage IV [Fatal]
  - Malignant neoplasm progression [Fatal]
  - Hyponatraemia [Recovering/Resolving]
  - Lymphangiosis carcinomatosa [Not Recovered/Not Resolved]
  - Vomiting [Recovering/Resolving]
  - Decreased appetite [Recovering/Resolving]
  - Drug ineffective [Unknown]

NARRATIVE: CASE EVENT DATE: 20210930
